FAERS Safety Report 8309745-4 (Version None)
Quarter: 2012Q2

REPORT INFORMATION
  Report Type: 
  Country: None (occurrence: None)
  Receive Date: 20120425
  Receipt Date: 20120416
  Transmission Date: 20120825
  Serious: Yes (Hospitalization, Other)
  Sender: FDA-Public Use
  Company Number: PHHY2011US41503

PATIENT
  Sex: Female

DRUGS (5)
  1. GLEEVEC [Suspect]
     Dosage: 300 MG, BID
     Route: 048
     Dates: start: 20110622
  2. GLEEVEC [Suspect]
     Dosage: 300 MG, BID
     Route: 048
  3. VANCOMYCIN [Concomitant]
  4. GLEEVEC [Suspect]
     Dosage: 400 MG, DAILY
     Route: 048
  5. GLEEVEC [Suspect]
     Indication: CHRONIC MYELOID LEUKAEMIA
     Dosage: 300 MG, BID
     Route: 048
     Dates: start: 20110412

REACTIONS (8)
  - RENAL FAILURE [None]
  - FEELING ABNORMAL [None]
  - DIARRHOEA [None]
  - MUSCLE SPASMS [None]
  - FAECALOMA [None]
  - DIVERTICULUM [None]
  - CARDIAC FAILURE [None]
  - DIVERTICULITIS [None]
